FAERS Safety Report 16377811 (Version 3)
Quarter: 2019Q3

REPORT INFORMATION
  Report Type: Report from Study
  Country: US (occurrence: US)
  Receive Date: 20190531
  Receipt Date: 20190816
  Transmission Date: 20191004
  Serious: Yes (Other)
  Sender: FDA-Public Use
  Company Number: US-JNJFOC-20190238211

PATIENT
  Age: 67 Year
  Sex: Male

DRUGS (4)
  1. IMBRUVICA [Suspect]
     Active Substance: IBRUTINIB
     Indication: CHRONIC MYELOID LEUKAEMIA
     Dosage: 140 MG, QD
     Route: 048
     Dates: start: 20190417
  2. IMBRUVICA [Suspect]
     Active Substance: IBRUTINIB
     Dosage: 420 MG, QD
     Route: 048
     Dates: start: 20190517
  3. IMBRUVICA [Suspect]
     Active Substance: IBRUTINIB
     Indication: CHRONIC LYMPHOCYTIC LEUKAEMIA
     Dosage: 140 MG, QD
     Route: 048
     Dates: start: 20190215
  4. IMBRUVICA [Suspect]
     Active Substance: IBRUTINIB
     Dosage: 420 MG, QD
     Route: 048

REACTIONS (8)
  - Bone marrow disorder [Not Recovered/Not Resolved]
  - White blood cell count increased [Recovering/Resolving]
  - Blood pressure decreased [Unknown]
  - Red blood cell count decreased [Recovering/Resolving]
  - Incorrect dose administered [Unknown]
  - Off label use [Unknown]
  - Product use in unapproved indication [Unknown]
  - Platelet count decreased [Recovering/Resolving]

NARRATIVE: CASE EVENT DATE: 20190417
